FAERS Safety Report 21931669 (Version 3)
Quarter: 2023Q1

REPORT INFORMATION
  Report Type: Spontaneous
  Country: RU (occurrence: RU)
  Receive Date: 20230131
  Receipt Date: 20230213
  Transmission Date: 20230417
  Serious: Yes (Other)
  Sender: FDA-Public Use
  Company Number: RU-002147023-NVSC2022RU085897

PATIENT
  Age: 74 Year
  Sex: Female
  Weight: 70 kg

DRUGS (5)
  1. BROLUCIZUMAB [Suspect]
     Active Substance: BROLUCIZUMAB
     Indication: Choroidal neovascularisation
     Dosage: 0.05 ML, QMO
     Route: 031
     Dates: start: 20211202
  2. BROLUCIZUMAB [Suspect]
     Active Substance: BROLUCIZUMAB
     Indication: Neovascular age-related macular degeneration
     Dosage: 0.05 ML, QMO
     Route: 031
     Dates: start: 20220113
  3. BROLUCIZUMAB [Suspect]
     Active Substance: BROLUCIZUMAB
     Dosage: 0.05 ML, QMO
     Route: 031
     Dates: start: 20220218
  4. BROLUCIZUMAB [Suspect]
     Active Substance: BROLUCIZUMAB
     Dosage: 0.05 ML, QMO
     Route: 031
     Dates: start: 20220316
  5. ASPIRIN [Concomitant]
     Active Substance: ASPIRIN
     Indication: Product used for unknown indication
     Dosage: 75 MG, QD
     Route: 065

REACTIONS (7)
  - Retinal vasculitis [Recovered/Resolved]
  - Vision blurred [Recovered/Resolved]
  - Chorioretinitis [Not Recovered/Not Resolved]
  - Papilloedema [Unknown]
  - Visual impairment [Recovering/Resolving]
  - Retinal vascular occlusion [Unknown]
  - Visual acuity reduced [Unknown]

NARRATIVE: CASE EVENT DATE: 20220411
